FAERS Safety Report 7810817-9 (Version None)
Quarter: 2011Q4

REPORT INFORMATION
  Report Type: 
  Country: None (occurrence: None)
  Receive Date: 20111012
  Receipt Date: 20111012
  Transmission Date: 20120403
  Serious: Yes (Hospitalization)
  Sender: FDA-Public Use
  Company Number: None

PATIENT
  Age: 52 Year
  Sex: Female
  Weight: 80.7403 kg

DRUGS (2)
  1. ZOLPIDEM [Suspect]
     Indication: INSOMNIA
     Dosage: 10 MG PO A.M
     Route: 048
     Dates: start: 20110101, end: 20110930
  2. ZOLPIDEM [Suspect]
     Indication: SCHIZOAFFECTIVE DISORDER
     Dosage: 10 MG PO A.M
     Route: 048
     Dates: start: 20110101, end: 20110930

REACTIONS (5)
  - DELUSION [None]
  - PRODUCT SUBSTITUTION ISSUE [None]
  - POOR QUALITY SLEEP [None]
  - INSOMNIA [None]
  - DEPRESSION [None]
